FAERS Safety Report 7736443-8 (Version None)
Quarter: 2011Q3

REPORT INFORMATION
  Report Type: 
  Country: None (occurrence: None)
  Receive Date: 20110902
  Receipt Date: 20110830
  Transmission Date: 20111222
  Serious: Yes (Death, Hospitalization)
  Sender: FDA-Public Use
  Company Number: PYR-11-25

PATIENT
  Age: 63 Year
  Sex: Male

DRUGS (4)
  1. ISONIAZID [Concomitant]
  2. ETHAMBUTOL HYDROCHLORIDE [Concomitant]
  3. RIFAMPICIN [Concomitant]
  4. PYRAZINAMIDE [Suspect]
     Indication: PULMONARY TUBERCULOSIS
     Dosage: 1.5G

REACTIONS (1)
  - HEPATITIS FULMINANT [None]
